FAERS Safety Report 20142254 (Version 1)
Quarter: 2021Q4

REPORT INFORMATION
  Report Type: Other
  Country: AU (occurrence: AU)
  Receive Date: 20211202
  Receipt Date: 20211202
  Transmission Date: 20220303
  Serious: Yes (Other)
  Sender: FDA-Public Use
  Company Number: AU-ASTELLAS-2021US044539

PATIENT
  Age: 34 Year
  Sex: Male

DRUGS (5)
  1. TACROLIMUS [Suspect]
     Active Substance: TACROLIMUS
     Indication: Dermatomyositis
     Dosage: UNK UNK, UNKNOWN FREQ.
     Route: 065
  2. METHYLPREDNISOLONE [Suspect]
     Active Substance: METHYLPREDNISOLONE
     Indication: Dermatomyositis
     Dosage: UNK, UNKNOWN FREQ.
     Route: 042
  3. RITUXIMAB [Suspect]
     Active Substance: RITUXIMAB
     Indication: Dermatomyositis
     Dosage: UNK, UNKNOWN FREQ.
     Route: 065
  4. TOFACITINIB CITRATE [Suspect]
     Active Substance: TOFACITINIB CITRATE
     Indication: Dermatomyositis
     Dosage: UNK, UNKNOWN FREQ.
     Route: 065
  5. HUMAN IMMUNOGLOBULIN G [Suspect]
     Active Substance: HUMAN IMMUNOGLOBULIN G
     Indication: Dermatomyositis
     Dosage: UNK, UNKNOWN FREQ.
     Route: 042

REACTIONS (5)
  - Bronchopulmonary aspergillosis [Unknown]
  - Cytomegalovirus viraemia [Unknown]
  - Pneumocystis jirovecii pneumonia [Unknown]
  - Off label use [Unknown]
  - Product use in unapproved indication [Unknown]
